FAERS Safety Report 7031205-1 (Version None)
Quarter: 2010Q4

REPORT INFORMATION
  Report Type: 
  Country: None (occurrence: None)
  Receive Date: 20101006
  Receipt Date: 20101005
  Transmission Date: 20110411
  Serious: Yes (Hospitalization)
  Sender: FDA-Public Use
  Company Number: A0764855A

PATIENT
  Age: 64 Year
  Sex: Male

DRUGS (4)
  1. AVANDIA [Suspect]
     Dosage: 4MG UNKNOWN
     Route: 048
     Dates: start: 20050601, end: 20070101
  2. INSULIN [Concomitant]
     Dates: start: 20030501, end: 20071118
  3. GLARGINE [Concomitant]
     Dates: start: 20030514, end: 20071118
  4. AMARYL [Concomitant]
     Dates: start: 20050601, end: 20051201

REACTIONS (4)
  - CARDIOMEGALY [None]
  - HEART INJURY [None]
  - HYPERCHOLESTEROLAEMIA [None]
  - MYOCARDIAL INFARCTION [None]
